FAERS Safety Report 23014327 (Version 3)
Quarter: 2023Q4

REPORT INFORMATION
  Report Type: Report from Study
  Country: KR (occurrence: KR)
  Receive Date: 20231002
  Receipt Date: 20231020
  Transmission Date: 20240109
  Serious: Yes (Hospitalization)
  Sender: FDA-Public Use
  Company Number: KR-ABBVIE-5427637

PATIENT
  Age: 67 Year
  Sex: Female
  Weight: 76 kg

DRUGS (53)
  1. GLECAPREVIR\PIBRENTASVIR [Suspect]
     Active Substance: GLECAPREVIR\PIBRENTASVIR
     Indication: Chronic hepatitis C
     Dosage: 3 TABLET
     Route: 048
     Dates: start: 20201126, end: 20210120
  2. Godex [Concomitant]
     Indication: Hepatic cirrhosis
     Dosage: 4 CAPSULE
     Route: 048
     Dates: start: 20210304
  3. Godex [Concomitant]
     Indication: Hepatic cirrhosis
     Dosage: 4 CAPSULE?GODEX CAPSULE
     Route: 048
     Dates: start: 20201119, end: 20201126
  4. MECKOOL [Concomitant]
     Indication: Adverse event
     Dosage: MECKOOL INJ. 10MG (METOCLOPRAMIDE)
     Dates: start: 20210201, end: 20210201
  5. BEECOM [Concomitant]
     Indication: Prophylaxis
     Dosage: BEECOM TAB
     Route: 048
     Dates: start: 2016
  6. LORAZEPAM [Concomitant]
     Active Substance: LORAZEPAM
     Indication: Anxiety disorder
     Dosage: 1 MG
     Route: 048
     Dates: start: 2016
  7. LACTULOSE [Concomitant]
     Active Substance: LACTULOSE
     Indication: Constipation prophylaxis
     Dosage: 3 SACHET? SYR. 15ML/P
     Route: 048
     Dates: start: 20210127, end: 20210127
  8. LACTULOSE [Concomitant]
     Active Substance: LACTULOSE
     Indication: Constipation prophylaxis
     Dosage: 1 SACHET? SYR. 15ML/P??DUPHALAC-EASY SYR. 15ML/P
     Route: 048
     Dates: start: 20210126, end: 20210126
  9. LACTULOSE [Concomitant]
     Active Substance: LACTULOSE
     Indication: Constipation prophylaxis
     Dosage: 3 SACHET? SYR. 15ML/P
     Route: 048
     Dates: start: 20210201, end: 20210223
  10. LACTULOSE [Concomitant]
     Active Substance: LACTULOSE
     Indication: Constipation prophylaxis
     Dosage: 2 SACHET? SYR. 15ML/P
     Route: 048
     Dates: start: 20210131, end: 20210131
  11. BEECOM HEXA [Concomitant]
     Indication: Vitamin supplementation
     Dosage: BEECOMHEXA INJ. (VITAMIN B-COMPLEX)?2
     Route: 042
     Dates: start: 20210225, end: 20210225
  12. LAMINA-G [Concomitant]
     Indication: Gastrooesophageal reflux disease
     Dosage: 40?SOL. 20ML?LAMINA-G SOL. 20ML (SODIUM ALGINATE)
     Route: 048
     Dates: start: 20210225, end: 20210304
  13. Pennel [Concomitant]
     Indication: Hepatic cirrhosis
     Dosage: 3 CAPSULE?PENNEL CAP (BIPHENYL DIMETHYL DICARBOXYLATE
     Route: 048
     Dates: start: 20210205, end: 20210223
  14. Feroba you sr [Concomitant]
     Indication: Anaemia prophylaxis
     Dosage: 2 TABLET
     Route: 048
     Dates: start: 20210201, end: 20210223
  15. ESOMEZOLE [Concomitant]
     Indication: Gastritis
     Dosage: 1 CAPSULE?ESOMEZOLE.20MG/C (ESOMEPRAZOLE)
     Route: 048
     Dates: start: 20210128, end: 20210223
  16. ESOMEZOLE [Concomitant]
     Indication: Gastritis
     Dosage: 1 CAPSULE
     Route: 048
     Dates: start: 20210126, end: 20210126
  17. GLIPTIDE [Concomitant]
     Indication: Gastrointestinal disorder prophylaxis
     Dosage: 2 TABLET
     Route: 048
     Dates: start: 20201230, end: 20210112
  18. GLIPTIDE [Concomitant]
     Indication: Gastrointestinal disorder prophylaxis
     Dosage: 2 TABLET
     Route: 048
     Dates: start: 20210225
  19. GLIPTIDE [Concomitant]
     Indication: Gastrointestinal disorder prophylaxis
     Dosage: 2 TABLET
     Route: 048
     Dates: start: 20210126, end: 20210128
  20. GLIPTIDE [Concomitant]
     Indication: Gastrointestinal disorder prophylaxis
     Dosage: 3 TABLET
     Route: 048
     Dates: start: 20210129, end: 20210224
  21. GLIPTIDE [Concomitant]
     Indication: Gastrointestinal disorder prophylaxis
     Dosage: 2 TABLET?GLIPTIDE TAB (SULGLYCOTIDE)
     Route: 048
     Dates: start: 20201119, end: 20201126
  22. K CONTIN [Concomitant]
     Indication: Hypokalaemia
     Dosage: 1800?K-CONTIN 600MG (POTASSIUM CHLORIDE)
     Route: 048
     Dates: start: 20210226, end: 20210304
  23. ASCORBIC ACID [Concomitant]
     Active Substance: ASCORBIC ACID
     Indication: Vitamin supplementation
     Dosage: 300?INJ. 5% 2ML (ASCORBIC ACID (VIT C))
     Route: 042
     Dates: start: 20210225, end: 20210225
  24. HI-LASE [Concomitant]
     Indication: Gastrointestinal disorder prophylaxis
     Dosage: HI-LASE TAB
     Route: 048
     Dates: start: 2016
  25. URSODIOL [Concomitant]
     Active Substance: URSODIOL
     Indication: Prophylaxis
     Dosage: 3 TABLET?URSA 100 TAB.
     Route: 048
     Dates: start: 20210129, end: 20210223
  26. URSODIOL [Concomitant]
     Active Substance: URSODIOL
     Indication: Prophylaxis
     Dates: start: 20201119, end: 20201126
  27. ESOMEZOLE [Concomitant]
     Indication: Gastrooesophageal reflux disease
     Dosage: 50?ESOMEZOLE.40MG/C (ESOMEPRAZOLE)
     Route: 048
     Dates: start: 20210225, end: 20210225
  28. ESOMEZOLE [Concomitant]
     Indication: Gastrooesophageal reflux disease
     Dosage: 40?.40MG/C
     Route: 048
     Dates: start: 20210226
  29. VITAMIN B COMPLEX [Concomitant]
     Active Substance: CYANOCOBALAMIN\DEXPANTHENOL\NIACINAMIDE\PYRIDOXINE HYDROCHLORIDE\RIBOFLAVIN 5^-PHOSPHATE SODIUM\THIA
     Indication: Vitamin supplementation
     Dosage: 2
     Route: 042
     Dates: start: 20210225, end: 20210225
  30. ESCITALOPRAM OXALATE [Concomitant]
     Active Substance: ESCITALOPRAM OXALATE
     Indication: Anxiety disorder
     Dosage: SANDOZ ESCITALOPRAM TAB 10MG
     Route: 048
     Dates: start: 2016
  31. Myonal [Concomitant]
     Indication: Adverse event
     Dosage: MYONAL TAB. 50MG (EPERISONE)
     Dates: start: 20210126, end: 20210128
  32. LAMINA-G [Concomitant]
     Indication: Gastrooesophageal reflux disease
     Dosage: LAMINA-G SOL. 20ML (SODIUM ALGINATE)
     Dates: start: 20201230, end: 20210112
  33. VENITOL [Concomitant]
     Indication: Prophylaxis
     Dosage: VENITOL TAB. 500MG (FLAVONOID)
     Dates: start: 20210126
  34. VANCOMYCIN HYDROCHLORIDE [Concomitant]
     Active Substance: VANCOMYCIN HYDROCHLORIDE
     Indication: Adverse event
     Dosage: VANCOMYCIN HCL INJ. 1G (VANCOMYCIN
     Dates: start: 20210202, end: 20210215
  35. FENTANYL [Concomitant]
     Active Substance: FENTANYL
     Indication: Adverse event
     Dosage: FENTANYL CITRATE INJ. 500MCG
     Dates: start: 20210128, end: 20210128
  36. BINICAPIN [Concomitant]
     Indication: Adverse event
     Dosage: BINICAPIN INJ. 5MG (NICARDIPINE)
     Dates: start: 20210128, end: 20210128
  37. PROPOFOL [Concomitant]
     Active Substance: PROPOFOL
     Indication: Adverse event
     Dosage: FRESOFOL MCT 1% INJ. 15ML (PROPOFOL)
     Dates: start: 20210128, end: 20210128
  38. BACTACIN [Concomitant]
     Indication: Adverse event
     Dosage: BACTACIN INJ 1.5G (AMPICILLIN SULBACTAM)
     Dates: start: 20210126, end: 20210201
  39. LIDOCAINE [Concomitant]
     Active Substance: LIDOCAINE
     Indication: Adverse event
     Dosage: LIDOCAINE HCL 1% INJ. 20ML( LIDOCAINE HCL 200MG)
     Dates: start: 20210128, end: 20210128
  40. ALBUMIN HUMAN [Concomitant]
     Active Substance: ALBUMIN HUMAN
     Indication: Hypoalbuminaemia
     Dosage: ALBUMIN 20% 100ML (ALBUMIN)
     Dates: start: 20210202, end: 20210202
  41. INTERFERON [Concomitant]
     Active Substance: INTERFERON
     Indication: Chronic hepatitis C
  42. MOBINUL [Concomitant]
     Indication: Adverse event
     Dosage: MOBINUL INJ. 0.2MG (GLYCOPYRRONIUM)
     Dates: start: 20210128, end: 20210128
  43. EPINEPHRINE [Concomitant]
     Active Substance: EPINEPHRINE
     Indication: Adverse event
     Dosage: EPINEPHRINE INJ. 1MG (EPINEPHRINE)
     Dates: start: 20210128, end: 20210128
  44. AMOBUROFEN [Concomitant]
     Indication: Adverse event
     Dosage: AMOBUROFEN INJ. 400MG/4ML (IBUPROFEN)
     Dates: start: 20210128, end: 20210130
  45. ULTIAN [Concomitant]
     Indication: Adverse event
     Dosage: ULTIAN INJ. 1MG (REMIFENTANIL)
     Dates: start: 20210128, end: 20210128
  46. PARAMACET SEMI [Concomitant]
     Indication: Adverse event
     Dosage: PARAMACET SEMI TAB. (ACETAMINOPHEN, TRAMADOL)
     Dates: start: 20210128, end: 20210128
  47. THEOESBERIVEN [Concomitant]
     Indication: Adverse event
     Dosage: THEO-ESBERIVEN F INJ. 2ML (MELILOTUS EXTRACT ETC)
     Dates: start: 20210126, end: 20210127
  48. Pyrinol [Concomitant]
     Indication: Adverse event
     Dosage: PYRINOL INJ. 5MG (PYRIDOSTIGMINE)
     Dates: start: 20210128, end: 20210128
  49. CEFTRIAXONE [Concomitant]
     Active Substance: CEFTRIAXONE\CEFTRIAXONE SODIUM
     Indication: Humerus fracture
     Dosage: CEFTRIAXONE INJ. 2G
     Dates: start: 20201111, end: 20201111
  50. RAMOSETRON HYDROCHLORIDE [Concomitant]
     Active Substance: RAMOSETRON HYDROCHLORIDE
     Indication: Adverse event
     Dosage: NASERON INJ. 0.3MG (RAMOSETRON)
     Dates: start: 20210128, end: 20210128
  51. BREVIBLOC [Concomitant]
     Active Substance: ESMOLOL HYDROCHLORIDE
     Indication: Adverse event
     Dosage: BREVIBLOC INJ. 100MG (ESMOLOL)
     Dates: start: 20210128, end: 20210128
  52. ROCURONIUM BROMIDE [Concomitant]
     Active Substance: ROCURONIUM BROMIDE
     Indication: Adverse event
     Dosage: ESMERON INJ. 50MG (ROCURONIUM)
     Dates: start: 20210128, end: 20210128
  53. PLASMA SOLUTION A [Concomitant]
     Indication: Adverse event
     Dosage: PLASMA SOLUTION A (POTASSIUM CHLORIDE)
     Dates: start: 20210127, end: 20210127

REACTIONS (2)
  - Melaena [Recovered/Resolved]
  - Hypertension [Not Recovered/Not Resolved]

NARRATIVE: CASE EVENT DATE: 20210216
